FAERS Safety Report 17109999 (Version 2)
Quarter: 2019Q4

REPORT INFORMATION
  Report Type: Spontaneous
  Country: DE (occurrence: DE)
  Receive Date: 20191204
  Receipt Date: 20191208
  Transmission Date: 20200122
  Serious: Yes (Other)
  Sender: FDA-Public Use
  Company Number: NVSC2019DE054506

PATIENT
  Age: 44 Year
  Sex: Male

DRUGS (1)
  1. NEVANAC [Suspect]
     Active Substance: NEPAFENAC
     Indication: EYE OEDEMA
     Dosage: 1 GTT, QD
     Route: 047
     Dates: start: 20190718

REACTIONS (2)
  - Cystoid macular oedema [Unknown]
  - Product use in unapproved indication [Unknown]

NARRATIVE: CASE EVENT DATE: 2019
